FAERS Safety Report 4281111-0 (Version None)
Quarter: 2004Q1

REPORT INFORMATION
  Report Type: 
  Country: None (occurrence: None)
  Receive Date: 20040129
  Receipt Date: 20040119
  Transmission Date: 20041129
  Serious: Yes (Hospitalization)
  Sender: FDA-Public Use
  Company Number: GB-BRISTOL-MYERS SQUIBB COMPANY-12482881

PATIENT
  Age: 41 Year
  Sex: Female

DRUGS (5)
  1. MITOMYCIN [Suspect]
     Indication: COLON CANCER METASTATIC
     Dosage: 1ST DOSE - 11.4 MG IV (23-SEP-2003)
     Route: 042
     Dates: start: 20031121
  2. FLUOROURACIL [Concomitant]
     Route: 042
     Dates: start: 20031121
  3. CAPECITABINE [Concomitant]
     Dates: start: 20030923, end: 20031007
  4. DEXAMETHASONE [Concomitant]
  5. GRANISETRON [Concomitant]

REACTIONS (5)
  - HEADACHE [None]
  - INFLUENZA LIKE ILLNESS [None]
  - MYALGIA [None]
  - NAUSEA [None]
  - PYREXIA [None]
